FAERS Safety Report 5106326-0 (Version None)
Quarter: 2006Q3

REPORT INFORMATION
  Report Type: 
  Country: None (occurrence: None)
  Receive Date: 20060912
  Receipt Date: 20060830
  Transmission Date: 20061208
  Serious: Yes (Other)
  Sender: FDA-Public Use
  Company Number: 2006106410

PATIENT
  Age: 31 Year
  Sex: Male
  Weight: 85 kg

DRUGS (4)
  1. LYRICA [Suspect]
     Indication: BACK PAIN
     Dosage: 300 MG (150 MG, 2 IN 1 D); ORAL
     Route: 048
     Dates: start: 20060627, end: 20060804
  2. AMITRIPTYLINE HCL [Concomitant]
  3. SUMATRIPTAN SUCCINATE [Concomitant]
  4. TRAMADOL HCL [Concomitant]

REACTIONS (2)
  - DYSURIA [None]
  - URINE FLOW DECREASED [None]
